FAERS Safety Report 6005471-5 (Version None)
Quarter: 2008Q4

REPORT INFORMATION
  Report Type: 
  Country: None (occurrence: None)
  Receive Date: 20081217
  Receipt Date: 20081205
  Transmission Date: 20090506
  Serious: Yes (Hospitalization)
  Sender: FDA-Public Use
  Company Number: GB-JNJFOC-20081201824

PATIENT
  Age: 38 Year
  Sex: Female

DRUGS (8)
  1. REMICADE [Suspect]
     Indication: COLITIS ULCERATIVE
     Route: 042
  2. BECLOMETHASONE DIPROPIONATE [Concomitant]
  3. CITALOPRAM HYDROBROMIDE [Concomitant]
  4. MERCAPTOPURINE [Concomitant]
  5. MESALAMINE [Concomitant]
  6. MORPHINE [Concomitant]
  7. ACETAMINOPHEN [Concomitant]
  8. ALBUTEROL SULFATE [Concomitant]

REACTIONS (12)
  - BACK PAIN [None]
  - MUSCLE RIGIDITY [None]
  - MUSCULOSKELETAL PAIN [None]
  - MYALGIA [None]
  - OEDEMA PERIPHERAL [None]
  - OROPHARYNGEAL PAIN [None]
  - PAIN [None]
  - PAIN IN EXTREMITY [None]
  - PALLOR [None]
  - PYREXIA [None]
  - RASH MACULO-PAPULAR [None]
  - TYPE IV HYPERSENSITIVITY REACTION [None]
